FAERS Safety Report 9832777 (Version 1)
Quarter: 2014Q1

REPORT INFORMATION
  Report Type: Spontaneous
  Country: CA (occurrence: CA)
  Receive Date: 20140121
  Receipt Date: 20140121
  Transmission Date: 20141002
  Serious: Yes (Other)
  Sender: FDA-Public Use
  Company Number: CA-GLAXOSMITHKLINE-A1057300A

PATIENT
  Age: 48 Year
  Sex: Female
  Weight: 52.3 kg

DRUGS (1)
  1. FLOVENT [Suspect]
     Indication: PRODUCT USED FOR UNKNOWN INDICATION
     Dosage: 500MCG SIX TIMES PER DAY
     Route: 055

REACTIONS (10)
  - Bronchitis bacterial [Not Recovered/Not Resolved]
  - Choking [Unknown]
  - Cough [Unknown]
  - Drug dose omission [Unknown]
  - Dyspnoea [Unknown]
  - Hyperhidrosis [Unknown]
  - Malaise [Unknown]
  - Mycoplasma infection [Unknown]
  - Vomiting [Unknown]
  - Wheezing [Unknown]
